FAERS Safety Report 16942670 (Version 1)
Quarter: 2019Q4

REPORT INFORMATION
  Report Type: Report from Study
  Country: US (occurrence: US)
  Receive Date: 20191021
  Receipt Date: 20191021
  Transmission Date: 20200122
  Serious: Yes (Hospitalization)
  Sender: FDA-Public Use
  Company Number: US-ACTELION-A-US2018-177554

PATIENT
  Age: 79 Year
  Sex: Female

DRUGS (2)
  1. OPSUMIT [Suspect]
     Active Substance: MACITENTAN
     Indication: PULMONARY ARTERIAL HYPERTENSION
     Dosage: 10 MG, QD
     Route: 048
     Dates: start: 20160305
  2. ENTRESTO [Concomitant]
     Active Substance: SACUBITRIL\VALSARTAN

REACTIONS (7)
  - Memory impairment [Unknown]
  - Hypertension [Unknown]
  - Dizziness [Unknown]
  - Gout [Unknown]
  - Constipation [Not Recovered/Not Resolved]
  - Hospitalisation [Unknown]
  - Product dose omission [Unknown]

NARRATIVE: CASE EVENT DATE: 201808
